FAERS Safety Report 6781400-1 (Version None)
Quarter: 2010Q2

REPORT INFORMATION
  Report Type: 
  Country: None (occurrence: None)
  Receive Date: 20100621
  Receipt Date: 20100318
  Transmission Date: 20101027
  Serious: Yes (Other)
  Sender: FDA-Public Use
  Company Number: US-AMGEN-KDL395138

PATIENT
  Sex: Male
  Weight: 94.9 kg

DRUGS (12)
  1. PROCRIT [Suspect]
     Indication: ANAEMIA OF MALIGNANT DISEASE
     Route: 058
     Dates: start: 20091030, end: 20100225
  2. ARANESP [Suspect]
     Indication: ANAEMIA OF MALIGNANT DISEASE
     Route: 058
     Dates: start: 20100217, end: 20100303
  3. PAXIL [Concomitant]
  4. ASPIRIN [Concomitant]
  5. ALLOPURINOL [Concomitant]
     Dates: start: 20091101, end: 20091201
  6. LEUKERAN [Concomitant]
  7. RITUXAN [Concomitant]
     Dates: end: 20100116
  8. FISH OIL [Concomitant]
  9. HERBAL SUPPLEMENT [Concomitant]
  10. LEVOTHYROXINE SODIUM [Concomitant]
  11. LIPITOR [Concomitant]
  12. PREDNISONE [Concomitant]
     Dates: start: 20100106

REACTIONS (1)
  - DRUG INEFFECTIVE [None]
